FAERS Safety Report 9645685 (Version 2)
Quarter: 2014Q1

REPORT INFORMATION
  Report Type: Spontaneous
  Country: SE (occurrence: SE)
  Receive Date: 20131025
  Receipt Date: 20140131
  Transmission Date: 20141002
  Serious: Yes (Other)
  Sender: FDA-Public Use
  Company Number: SE-ACTAVIS-2013-19238

PATIENT
  Sex: Female

DRUGS (1)
  1. LAMOTRIGIN ACTAVIS [Suspect]
     Indication: ANXIETY DISORDER
     Dosage: UNK
     Route: 065

REACTIONS (4)
  - Meningitis [Unknown]
  - VIIth nerve paralysis [Unknown]
  - Pyrexia [Unknown]
  - Headache [Unknown]
